FAERS Safety Report 12249308 (Version 1)
Quarter: 2016Q2

REPORT INFORMATION
  Report Type: Report from Study
  Country: US (occurrence: US)
  Receive Date: 20160408
  Receipt Date: 20160408
  Transmission Date: 20160815
  Serious: No
  Sender: FDA-Public Use
  Company Number: ADR-2015-00811

PATIENT
  Age: 67 Year
  Sex: Male

DRUGS (4)
  1. BUPIVACAINE. [Suspect]
     Active Substance: BUPIVACAINE
     Dosage: 15.014 MG/DAY
  2. CLONIDINE. [Suspect]
     Active Substance: CLONIDINE
     Dosage: 75.07MCG/DAY
  3. DILAUDID [Suspect]
     Active Substance: HYDROMORPHONE HYDROCHLORIDE
     Dosage: 0.7507 MG/DAY
  4. COMPOUNDED BACLOFEN [Suspect]
     Active Substance: BACLOFEN
     Dosage: 375.36 MCG/DAY

REACTIONS (2)
  - Sedation [Recovered/Resolved]
  - Overdose [Recovered/Resolved]
